FAERS Safety Report 8110752-5 (Version None)
Quarter: 2012Q1

REPORT INFORMATION
  Report Type: 
  Country: None (occurrence: None)
  Receive Date: 20120201
  Receipt Date: 20120201
  Transmission Date: 20120608
  Serious: Yes (Hospitalization)
  Sender: FDA-Public Use
  Company Number: None

PATIENT
  Sex: Male
  Weight: 94.5 kg

DRUGS (2)
  1. VINORELBINE TARTRATE [Suspect]
     Dosage: 64 MG
     Dates: end: 20120118
  2. CISPLATIN [Suspect]
     Dosage: 160 MG
     Dates: end: 20120111

REACTIONS (1)
  - BLOOD GLUCOSE INCREASED [None]
